FAERS Safety Report 4638052-6 (Version None)
Quarter: 2005Q2

REPORT INFORMATION
  Report Type: 
  Country: None (occurrence: None)
  Receive Date: 20050415
  Receipt Date: 20050329
  Transmission Date: 20051028
  Serious: Yes (Hospitalization, Other)
  Sender: FDA-Public Use
  Company Number: US_0411108150

PATIENT
  Age: 38 Year
  Sex: Male
  Weight: 100 kg

DRUGS (27)
  1. ZYPREXA [Suspect]
     Indication: SCHIZOAFFECTIVE DISORDER
     Dosage: 20 MG/1 AT BEDTIME
     Dates: start: 19960101, end: 20000922
  2. HUMULIN N [Suspect]
     Dosage: 5 U IN THE MORNING
     Dates: start: 20030115
  3. HUMULIN R [Suspect]
     Dates: start: 20030115, end: 20030620
  4. ABILIFY (ARIPIRAZOLE) [Concomitant]
  5. CLOZARIL [Concomitant]
  6. SEROQUEL [Concomitant]
  7. RISPERDAL [Concomitant]
  8. GEODON [Concomitant]
  9. THORAZINE [Concomitant]
  10. HALDOL (HALOPERIDOL DECANOATE) [Concomitant]
  11. NAVANE [Concomitant]
  12. DEPAKOTE [Concomitant]
  13. DEPAKENE [Concomitant]
  14. WELLBUTRIN [Concomitant]
  15. LOPRESSOR [Concomitant]
  16. PROLIXIN [Concomitant]
  17. COGENTIN [Concomitant]
  18. ZANTAC [Concomitant]
  19. ATIVAN [Concomitant]
  20. GLUCOTROL XL [Concomitant]
  21. ZOCOR (SIMVASTATIN RATIOPHARM) [Concomitant]
  22. RAMIPRIL [Concomitant]
  23. LANTUS [Concomitant]
  24. LOPRESSOR [Concomitant]
  25. TRILEPTAL [Concomitant]
  26. VISTARIL [Concomitant]
  27. PLAVIX [Concomitant]

REACTIONS (55)
  - AGGRESSION [None]
  - AGITATION [None]
  - AKATHISIA [None]
  - ALCOHOLISM [None]
  - ANXIETY [None]
  - ARTHRALGIA [None]
  - BIPOLAR DISORDER [None]
  - BLOOD GLUCOSE INCREASED [None]
  - BLOOD TRIGLYCERIDES INCREASED [None]
  - CONTUSION [None]
  - CORONARY ARTERY OCCLUSION [None]
  - DELUSION [None]
  - DILATATION ATRIAL [None]
  - DIPLOPIA [None]
  - DRUG DEPENDENCE [None]
  - DRUG SCREEN POSITIVE [None]
  - DYSLIPIDAEMIA [None]
  - DYSPEPSIA [None]
  - ECCHYMOSIS [None]
  - ELECTROCARDIOGRAM T WAVE ABNORMAL [None]
  - EXCORIATION [None]
  - EXTRAPYRAMIDAL DISORDER [None]
  - FACIAL PAIN [None]
  - GRANDIOSITY [None]
  - HALLUCINATION [None]
  - HEADACHE [None]
  - HUNGER [None]
  - HYPERSOMNIA [None]
  - HYPERTENSION [None]
  - HYPOMANIA [None]
  - INTENTIONAL SELF-INJURY [None]
  - LEGAL PROBLEM [None]
  - MULTIPLE DRUG OVERDOSE [None]
  - MYOCARDIAL INFARCTION [None]
  - NECK PAIN [None]
  - NIGHTMARE [None]
  - PARANOIA [None]
  - PHYSICAL ASSAULT [None]
  - POLYDIPSIA [None]
  - PSYCHOTIC DISORDER [None]
  - QRS AXIS ABNORMAL [None]
  - RASH [None]
  - REFUSAL OF TREATMENT BY PATIENT [None]
  - SCHIZOAFFECTIVE DISORDER [None]
  - SEXUAL DYSFUNCTION [None]
  - SHOULDER PAIN [None]
  - SINUS ARRHYTHMIA [None]
  - SKIN LACERATION [None]
  - SLEEP APNOEA SYNDROME [None]
  - SNORING [None]
  - SUICIDAL IDEATION [None]
  - SWELLING [None]
  - SYNCOPE [None]
  - TREMOR [None]
  - WEIGHT INCREASED [None]
